FAERS Safety Report 6694563-3 (Version None)
Quarter: 2010Q2

REPORT INFORMATION
  Report Type: 
  Country: None (occurrence: None)
  Receive Date: 20100423
  Receipt Date: 20100414
  Transmission Date: 20101027
  Serious: Yes (Hospitalization)
  Sender: FDA-Public Use
  Company Number: JP-MERCK-1004USA02942

PATIENT

DRUGS (3)
  1. SINGULAIR [Suspect]
     Route: 048
     Dates: start: 20070101
  2. METHYLPREDNISOLONE [Suspect]
     Indication: ASTHMA
     Route: 048
     Dates: start: 19850101
  3. METHYLPREDNISOLONE [Suspect]
     Route: 048
     Dates: start: 20080601

REACTIONS (1)
  - ALLERGIC GRANULOMATOUS ANGIITIS [None]
